FAERS Safety Report 9556247 (Version 1)
Quarter: 2013Q3

REPORT INFORMATION
  Report Type: Spontaneous
  Country: FR (occurrence: FR)
  Receive Date: 20130926
  Receipt Date: 20130926
  Transmission Date: 20140515
  Serious: Yes (Life-Threatening, Hospitalization)
  Sender: FDA-Public Use
  Company Number: PHHY2013FR106686

PATIENT
  Age: 70 Year
  Sex: Male

DRUGS (11)
  1. NISISCO [Suspect]
     Indication: HYPERTENSION
     Dosage: UNK UKN, UNK
     Route: 048
     Dates: end: 20130708
  2. SIMVASTATINE [Suspect]
     Dosage: UNK UKN, UNK
     Route: 048
     Dates: end: 20130422
  3. INTELENCE [Suspect]
     Dosage: UNK UKN, UNK
     Route: 048
     Dates: end: 20130726
  4. ISENTRESS [Suspect]
     Indication: ABDOMINAL PAIN
     Dosage: UNK UKN, UNK
     Route: 048
  5. KIVEXA [Suspect]
     Dosage: UNK UKN, UNK
     Route: 048
     Dates: end: 20130708
  6. AMLOR [Suspect]
     Dosage: UNK UKN, UNK
     Route: 048
  7. LYRICA [Suspect]
     Dosage: UNK UKN, UNK
     Route: 048
  8. KARDEGIC [Suspect]
     Dosage: UNK UKN, UNK
     Route: 048
  9. TARDYFERON [Suspect]
     Dosage: UNK UKN, UNK
     Route: 048
  10. MOVICOL [Suspect]
     Dosage: UNK UKN, UNK
     Route: 048
  11. SPECIAFOLDINE [Suspect]
     Dosage: UNK UKN, UNK
     Route: 048

REACTIONS (5)
  - Pancytopenia [Not Recovered/Not Resolved]
  - Granulomatous liver disease [Not Recovered/Not Resolved]
  - Renal failure [Recovering/Resolving]
  - Cholestasis [Not Recovered/Not Resolved]
  - Pyrexia [Recovering/Resolving]
